FAERS Safety Report 14874447 (Version 3)
Quarter: 2019Q3

REPORT INFORMATION
  Report Type: Spontaneous
  Country: AU (occurrence: AU)
  Receive Date: 20180510
  Receipt Date: 20190719
  Transmission Date: 20191004
  Serious: Yes (Life-Threatening, Hospitalization, Other)
  Sender: FDA-Public Use
  Company Number: AU-MYLANLABS-2017M1042318

PATIENT
  Sex: Female

DRUGS (2)
  1. CLOZARIL [Suspect]
     Active Substance: CLOZAPINE
     Indication: SCHIZOPHRENIA
     Dosage: 300 MILLIGRAM
     Route: 048
     Dates: start: 20161229, end: 20190628
  2. CLOZARIL [Suspect]
     Active Substance: CLOZAPINE
     Dosage: 175 MILLIGRAM
     Route: 048
     Dates: start: 20161229, end: 20190628

REACTIONS (9)
  - Pleural effusion [Unknown]
  - Hallucination, auditory [Unknown]
  - Pneumonia [Unknown]
  - Mental disorder [Recovering/Resolving]
  - Catatonia [Recovering/Resolving]
  - Pneumothorax [Unknown]
  - Delusion [Unknown]
  - Hallucination [Unknown]
  - Drug withdrawal syndrome [Unknown]

NARRATIVE: CASE EVENT DATE: 2019
